FAERS Safety Report 19028111 (Version 3)
Quarter: 2021Q4

REPORT INFORMATION
  Report Type: Other
  Country: CA (occurrence: CA)
  Receive Date: 20210319
  Receipt Date: 20211225
  Transmission Date: 20220303
  Serious: Yes (Hospitalization, Other)
  Sender: FDA-Public Use
  Company Number: CA-LUPIN PHARMACEUTICALS INC.-2021-03323

PATIENT
  Age: 34 Year
  Sex: Female

DRUGS (3)
  1. CEPHALEXIN [Suspect]
     Active Substance: CEPHALEXIN
     Indication: Postoperative wound infection
     Dosage: 500 MILLIGRAM, QID
     Route: 065
  2. METRONIDAZOLE [Suspect]
     Active Substance: METRONIDAZOLE
     Indication: Colectomy
     Dosage: 250 MILLIGRAM, TID, TABLETS (3 EVERY 1 DAYS)
     Route: 065
  3. REMICADE [Suspect]
     Active Substance: INFLIXIMAB
     Indication: Crohn^s disease
     Dosage: 300 MILLIGRAM, 1 EVERY 8 WEEKS
     Route: 042

REACTIONS (3)
  - Postoperative wound infection [Unknown]
  - Colectomy [Unknown]
  - Sluggishness [Unknown]
